FAERS Safety Report 10079639 (Version 1)
Quarter: 2014Q2

REPORT INFORMATION
  Report Type: Spontaneous
  Country: GB (occurrence: GB)
  Receive Date: 20140415
  Receipt Date: 20140415
  Transmission Date: 20141212
  Serious: Yes (Hospitalization)
  Sender: FDA-Public Use
  Company Number: GB-GLAXOSMITHKLINE-B0982629A

PATIENT
  Age: 65 Year
  Sex: Female

DRUGS (2)
  1. NIQUITIN CQ CLEAR 14MG [Suspect]
     Indication: EX-TOBACCO USER
     Route: 062
     Dates: start: 20140224
  2. HORMONE REPLACEMENT THERAPY [Concomitant]

REACTIONS (6)
  - Dyspnoea [Not Recovered/Not Resolved]
  - Hypersensitivity [Unknown]
  - Respiratory disorder [Unknown]
  - Oxygen saturation decreased [Unknown]
  - Drug administration error [Unknown]
  - Condition aggravated [Unknown]
